FAERS Safety Report 5988799-4 (Version None)
Quarter: 2008Q4

REPORT INFORMATION
  Report Type: 
  Country: None (occurrence: None)
  Receive Date: 20081208
  Receipt Date: 20081208
  Transmission Date: 20090506
  Serious: Yes (Life-Threatening, Hospitalization)
  Sender: FDA-Public Use
  Company Number: None

PATIENT
  Age: 57 Year
  Sex: Female
  Weight: 61.2356 kg

DRUGS (1)
  1. CHANTIX [Suspect]
     Indication: SMOKING CESSATION THERAPY
     Dosage: DAILY PO
     Route: 048
     Dates: start: 20071005, end: 20071112

REACTIONS (5)
  - PAIN [None]
  - PANCREATIC CYST [None]
  - PANCREATIC FISTULA [None]
  - PANCREATITIS [None]
  - WEIGHT DECREASED [None]
